FAERS Safety Report 4402154-X (Version None)
Quarter: 2004Q3

REPORT INFORMATION
  Report Type: 
  Country: None (occurrence: None)
  Receive Date: 20040715
  Receipt Date: 20040625
  Transmission Date: 20050211
  Serious: No
  Sender: FDA-Public Use
  Company Number: ENT 2004-0125(1)

PATIENT
  Age: 66 Year
  Sex: Male

DRUGS (2)
  1. COMTAN [Suspect]
     Indication: PARKINSON'S DISEASE
     Dosage: 200 MG QD
     Dates: start: 20040428, end: 20040504
  2. MADOPAR [Concomitant]

REACTIONS (1)
  - HYPOMANIA [None]
